FAERS Safety Report 8400024-3 (Version None)
Quarter: 2012Q2

REPORT INFORMATION
  Report Type: 
  Country: None (occurrence: None)
  Receive Date: 20120531
  Receipt Date: 20120523
  Transmission Date: 20120825
  Serious: Yes (Other)
  Sender: FDA-Public Use
  Company Number: US-ABBOTT-12P-163-0934584-00

PATIENT
  Sex: Female
  Weight: 58.566 kg

DRUGS (4)
  1. HUMIRA [Suspect]
  2. AZATHIOPRINE [Concomitant]
     Indication: CROHN'S DISEASE
  3. ALLOPURINOL [Concomitant]
     Indication: PRODUCT USED FOR UNKNOWN INDICATION
  4. HUMIRA [Suspect]
     Indication: CROHN'S DISEASE
     Dates: start: 20100101, end: 20110101

REACTIONS (8)
  - LARGE INTESTINAL ULCER [None]
  - MALAISE [None]
  - DECREASED APPETITE [None]
  - HEADACHE [None]
  - CROHN'S DISEASE [None]
  - NAUSEA [None]
  - PHOTOPHOBIA [None]
  - ILEAL STENOSIS [None]
